FAERS Safety Report 4890930-9 (Version None)
Quarter: 2006Q1

REPORT INFORMATION
  Report Type: 
  Country: None (occurrence: None)
  Receive Date: 20060125
  Receipt Date: 20060114
  Transmission Date: 20060701
  Serious: Yes (Death, Other)
  Sender: FDA-Public Use
  Company Number: SA-JNJFOC-20060102880

PATIENT
  Age: 5 Decade
  Sex: Male

DRUGS (6)
  1. TOPAMAX [Suspect]
     Dosage: 100 MG AND 50 MG
     Route: 048
  2. TOPAMAX [Suspect]
     Indication: DRUG THERAPY
     Route: 048
  3. SERENASE [Concomitant]
     Route: 048
  4. RISPERDAL [Concomitant]
     Route: 048
  5. LASIX [Concomitant]
     Route: 048
  6. CIPRALEX [Concomitant]
     Indication: ANTIDEPRESSANT THERAPY

REACTIONS (3)
  - CARDIAC ARREST [None]
  - FATIGUE [None]
  - HYPERVENTILATION [None]
